FAERS Safety Report 5357175-X (Version None)
Quarter: 2007Q2

REPORT INFORMATION
  Report Type: 
  Country: None (occurrence: None)
  Receive Date: 20070614
  Receipt Date: 20070605
  Transmission Date: 20071010
  Serious: Yes (Life-Threatening, Hospitalization)
  Sender: FDA-Public Use
  Company Number: US-KINGPHARMUSA00001-K200700685

PATIENT

DRUGS (7)
  1. ALTACE [Suspect]
     Dosage: 10 MG, QD
     Route: 048
     Dates: start: 20061001, end: 20070327
  2. COSOPT /01419801/ [Suspect]
     Indication: GLAUCOMA
     Route: 031
     Dates: end: 20070327
  3. CRESTOR [Suspect]
     Dosage: 5 MG, QD
     Route: 048
     Dates: start: 20061001, end: 20070327
  4. DETENSIEL /00802601/ [Suspect]
     Dosage: 10 MG, QD
     Route: 048
     Dates: start: 20060803, end: 20070327
  5. CORDARONE /00133102/ [Suspect]
     Dosage: 100 MG, QD
     Route: 048
     Dates: start: 20040701, end: 20070327
  6. MOPRAL  /00661201/ [Concomitant]
  7. PREVISCAN /00789001/ [Concomitant]

REACTIONS (9)
  - ALVEOLITIS [None]
  - BODY TEMPERATURE INCREASED [None]
  - C-REACTIVE PROTEIN INCREASED [None]
  - GENERAL PHYSICAL HEALTH DETERIORATION [None]
  - HAEMOPTYSIS [None]
  - INFLAMMATION [None]
  - INTERSTITIAL LUNG DISEASE [None]
  - OVERDOSE [None]
  - PLEURISY [None]
